FAERS Safety Report 9093558 (Version 1)
Quarter: 2013Q1

REPORT INFORMATION
  Report Type: Spontaneous
  Country: US (occurrence: US)
  Receive Date: 20130218
  Receipt Date: 20130218
  Transmission Date: 20140127
  Serious: Yes (Other)
  Sender: FDA-Public Use
  Company Number: US-ELI_LILLY_AND_COMPANY-US201302001871

PATIENT
  Age: 54 Year
  Sex: Female

DRUGS (1)
  1. HUMALOG LISPRO [Suspect]
     Indication: DIABETES MELLITUS
     Dosage: 54 U, PRN

REACTIONS (6)
  - Cerebrovascular accident [Unknown]
  - Transient ischaemic attack [Unknown]
  - Blood glucose increased [Unknown]
  - Injury associated with device [Unknown]
  - Puncture site haemorrhage [Unknown]
  - Drug dose omission [Unknown]
